FAERS Safety Report 9645063 (Version 1)
Quarter: 2013Q4

REPORT INFORMATION
  Report Type: Report from Study
  Country: CA (occurrence: CA)
  Receive Date: 20131025
  Receipt Date: 20131025
  Transmission Date: 20140711
  Serious: Yes (Other)
  Sender: FDA-Public Use
  Company Number: CA-JNJFOC-20131011935

PATIENT
  Age: 64 Year
  Sex: Male
  Weight: 95 kg

DRUGS (6)
  1. REMICADE [Suspect]
     Indication: CROHN^S DISEASE
     Route: 042
     Dates: start: 20080617
  2. CELEXA [Concomitant]
     Route: 065
  3. LORAZEPAM [Concomitant]
     Route: 065
  4. COVERSYL [Concomitant]
     Route: 065
  5. DIAMICRON [Concomitant]
     Route: 065
  6. VITAMIN [Concomitant]
     Route: 065

REACTIONS (1)
  - Arteriovenous fistula operation [Unknown]
